FAERS Safety Report 9417003 (Version 1)
Quarter: 2013Q3

REPORT INFORMATION
  Report Type: Spontaneous
  Country: US (occurrence: None)
  Receive Date: 20130722
  Receipt Date: 20130722
  Transmission Date: 20140515
  Serious: No
  Sender: FDA-Public Use
  Company Number: 2013-00117

PATIENT
  Age: 41 Year
  Sex: Male

DRUGS (2)
  1. ZICAM [Suspect]
     Indication: NASOPHARYNGITIS
     Dosage: 1 RAPIDMELT ORALLY 3 TIMES DAILY
     Route: 048
     Dates: start: 20130714, end: 20130717
  2. ZICAM [Suspect]
     Indication: PROPHYLAXIS
     Dosage: 1 RAPIDMELT ORALLY 3 TIMES DAILY
     Route: 048
     Dates: start: 20130714, end: 20130717

REACTIONS (1)
  - Ageusia [None]
